FAERS Safety Report 6346714-8 (Version None)
Quarter: 2009Q3

REPORT INFORMATION
  Report Type: 
  Country: None (occurrence: None)
  Receive Date: 20090904
  Receipt Date: 20090824
  Transmission Date: 20100115
  Serious: Yes (Death, Hospitalization)
  Sender: FDA-Public Use
  Company Number: 2009AL005703

PATIENT
  Age: 68 Year
  Sex: Male

DRUGS (5)
  1. RAMIPRIL [Suspect]
     Indication: HYPERTENSION
     Dosage: 10 MG; QD; PO
     Route: 048
     Dates: start: 20020101, end: 20090809
  2. ASPIRIN [Concomitant]
  3. SIMVASTATIN [Concomitant]
  4. PREDNISOLONE [Concomitant]
  5. TAMSULOSIN HCL [Concomitant]

REACTIONS (6)
  - ACUTE HEPATIC FAILURE [None]
  - COMA [None]
  - DECREASED APPETITE [None]
  - DIALYSIS [None]
  - FATIGUE [None]
  - GENERAL PHYSICAL HEALTH DETERIORATION [None]
